FAERS Safety Report 16489138 (Version 1)
Quarter: 2019Q2

REPORT INFORMATION
  Report Type: Spontaneous
  Country: US (occurrence: US)
  Receive Date: 20190628
  Receipt Date: 20190628
  Transmission Date: 20190711
  Serious: No
  Sender: FDA-Public Use
  Company Number: US-ACCORD-067493

PATIENT
  Age: 68 Year
  Sex: Female
  Weight: 52.16 kg

DRUGS (1)
  1. CLONAZEPAM ACCORD [Suspect]
     Active Substance: CLONAZEPAM
     Indication: ANXIETY
     Dosage: STRENGTH: 1 MG?1 MG 1/2 TO 1 TABLET DAILY

REACTIONS (2)
  - Drug ineffective [Unknown]
  - Product substitution issue [Unknown]
